FAERS Safety Report 5009571-8 (Version None)
Quarter: 2006Q2

REPORT INFORMATION
  Report Type: 
  Country: None (occurrence: None)
  Receive Date: 20060524
  Receipt Date: 20060518
  Transmission Date: 20061013
  Serious: Yes (Hospitalization)
  Sender: FDA-Public Use
  Company Number: FR-AVENTIS-200611822FR

PATIENT
  Age: 42 Year
  Sex: Female

DRUGS (4)
  1. FLAGYL [Suspect]
     Route: 048
     Dates: start: 20060212, end: 20060221
  2. CIFLOX [Suspect]
     Route: 048
     Dates: start: 20060211, end: 20060217
  3. MALARONE [Suspect]
     Route: 048
     Dates: start: 20060127, end: 20060217
  4. COARTEM [Suspect]
     Route: 048
     Dates: start: 20060208, end: 20060210

REACTIONS (5)
  - CYTOLYTIC HEPATITIS [None]
  - DIARRHOEA [None]
  - HEPATITIS [None]
  - HEPATOCELLULAR DAMAGE [None]
  - PYREXIA [None]
